FAERS Safety Report 10007093 (Version 1)
Quarter: 2014Q1

REPORT INFORMATION
  Report Type: Spontaneous
  Country: US (occurrence: None)
  Receive Date: 20140312
  Receipt Date: 20140312
  Transmission Date: 20141002
  Serious: Yes (Life-Threatening, Hospitalization)
  Sender: FDA-Public Use
  Company Number: None

PATIENT
  Age: 60 Year
  Sex: Male
  Weight: 113.4 kg

DRUGS (2)
  1. ANDROGEL [Suspect]
     Indication: FATIGUE
     Dosage: 3 PUMPS DAILY ONCE DAILY. APPLIED TO A SURFACE, USUALLY THE SKIN.
     Route: 061
  2. ANDROGEL [Suspect]
     Indication: SEXUAL DYSFUNCTION
     Dosage: 3 PUMPS DAILY ONCE DAILY. APPLIED TO A SURFACE, USUALLY THE SKIN.
     Route: 061

REACTIONS (1)
  - Cerebrovascular accident [None]
